FAERS Safety Report 8418144-6 (Version None)
Quarter: 2012Q2

REPORT INFORMATION
  Report Type: 
  Country: None (occurrence: None)
  Receive Date: 20120531
  Receipt Date: 20120519
  Transmission Date: 20120825
  Serious: Yes (Other)
  Sender: FDA-Public Use
  Company Number: 2012AP001539

PATIENT
  Age: 51 Year
  Sex: Male

DRUGS (2)
  1. LISINOPRIL [Suspect]
     Indication: HYPERTENSION
  2. HYDROCHLOROTHIAZIDE [Suspect]
     Indication: HYPERTENSION

REACTIONS (8)
  - SKIN FISSURES [None]
  - RASH ERYTHEMATOUS [None]
  - PSEUDOLYMPHOMA [None]
  - LYMPHADENOPATHY [None]
  - PRURITUS [None]
  - HYPERKERATOSIS [None]
  - LYMPHOCYTE MORPHOLOGY ABNORMAL [None]
  - SKIN EXFOLIATION [None]
